FAERS Safety Report 24601019 (Version 1)
Quarter: 2024Q4

REPORT INFORMATION
  Report Type: Spontaneous
  Country: MX (occurrence: MX)
  Receive Date: 20241110
  Receipt Date: 20241110
  Transmission Date: 20250115
  Serious: Yes (Death, Other)
  Sender: AMNEAL
  Company Number: MX-AMNEAL PHARMACEUTICALS-2024-AMRX-03984

PATIENT
  Age: 61 Year
  Sex: Male

DRUGS (3)
  1. DOXORUBICIN HYDROCHLORIDE [Suspect]
     Active Substance: DOXORUBICIN HYDROCHLORIDE
     Indication: Tumour necrosis
     Dosage: CHEMOTHERAPY WITH DOXORUBICIN ON THE 20TH DAY
     Route: 065
  2. DOXORUBICIN HYDROCHLORIDE [Suspect]
     Active Substance: DOXORUBICIN HYDROCHLORIDE
     Indication: Prostate sarcoma
  3. ERTAPENEM [Concomitant]
     Active Substance: ERTAPENEM
     Indication: Infection
     Dosage: UNK
     Route: 065

REACTIONS (2)
  - Febrile neutropenia [Fatal]
  - Haematotoxicity [Fatal]
